FAERS Safety Report 25919028 (Version 1)
Quarter: 2025Q4

REPORT INFORMATION
  Report Type: Report from Study
  Country: US (occurrence: US)
  Receive Date: 20251014
  Receipt Date: 20251014
  Transmission Date: 20260119
  Serious: No
  Sender: AVERITAS
  Company Number: US-GRUNENTHAL-2025-123698

PATIENT
  Age: 69 Year
  Sex: Male

DRUGS (1)
  1. QUTENZA [Suspect]
     Active Substance: CAPSAICIN
     Indication: Diabetic neuropathy
     Dosage: UNK
     Route: 061
     Dates: start: 20251001, end: 20251001

REACTIONS (3)
  - Application site pain [Recovered/Resolved]
  - Feeling hot [Recovered/Resolved]
  - Electric shock sensation [Recovered/Resolved]

NARRATIVE: CASE EVENT DATE: 20251001
